FAERS Safety Report 8551898 (Version 2)
Quarter: 2012Q4

REPORT INFORMATION
  Report Type: 
  Country: US (occurrence: US)
  Receive Date: 20120508
  Receipt Date: 20121106
  Transmission Date: 20130627
  Serious: Yes (Hospitalization)
  Sender: FDA-Public Use
  Company Number: US-BAYER-2012-043466

PATIENT
  Age: 29 Year
  Sex: Female
  Weight: 77.1 kg

DRUGS (2)
  1. BEYAZ [Suspect]
     Indication: CYST OVARY
     Dosage: UNK
     Dates: start: 201105, end: 201112
  2. BEYAZ [Suspect]
     Indication: CYST OVARY
     Dosage: UNK
     Dates: start: 201211

REACTIONS (6)
  - Deep vein thrombosis [None]
  - Pain [None]
  - Emotional distress [None]
  - Injury [None]
  - Scar [None]
  - Contusion [None]
